FAERS Safety Report 9805014 (Version 2)
Quarter: 2014Q1

REPORT INFORMATION
  Report Type: Report from Study
  Country: US (occurrence: US)
  Receive Date: 20140109
  Receipt Date: 20140116
  Transmission Date: 20141002
  Serious: Yes (Life-Threatening, Hospitalization)
  Sender: FDA-Public Use
  Company Number: US-009507513-1401USA002127

PATIENT
  Age: 56 Year
  Sex: Male
  Weight: 56.47 kg

DRUGS (12)
  1. VORINOSTAT [Suspect]
     Indication: DIFFUSE LARGE B-CELL LYMPHOMA
     Dosage: 400 MG, QD, ON DAYS 1-5 OF A 21 DAY^S CYCLE
     Route: 048
     Dates: start: 20130925, end: 20130929
  2. VORINOSTAT [Suspect]
     Dosage: 400 MG, QD, ON DAYS 1-5 OF A 21 DAY^S CYCLE
     Route: 048
     Dates: start: 20131218, end: 20131222
  3. CYCLOPHOSPHAMIDE [Suspect]
     Indication: DIFFUSE LARGE B-CELL LYMPHOMA
     Dosage: 750MG/M2 IV OVER 30-60 MINUTES ON DAY 3 OF A 21 DAY^S CYCLE
     Route: 042
     Dates: start: 20130927, end: 20130927
  4. CYCLOPHOSPHAMIDE [Suspect]
     Dosage: 750MG/M2 IV OVER 30-60 MINUTES ON DAY 3 OF A 21 DAY^S CYCLE
     Route: 042
     Dates: start: 20131220, end: 20131220
  5. DOXORUBICIN [Suspect]
     Dosage: 50 MG/M2 IVP ON DAY 3 OF A 21 DAY^S CYCLE
     Route: 042
     Dates: start: 20130927, end: 20130927
  6. DOXORUBICIN [Suspect]
     Dosage: 50 MG/M2 IVP ON DAY 3 OF A 21 DAY^S CYCLE
     Route: 042
     Dates: start: 20131220, end: 20131220
  7. PREDNISONE [Suspect]
     Dosage: 100 MG PO QD ON DAYS 3-7 OF A 21 DAY^S CYCLE
     Route: 048
     Dates: start: 20130927, end: 20131001
  8. PREDNISONE [Suspect]
     Dosage: 100 MG PO QD ON DAYS 3-7 OF A 21 DAY^S CYCLE
     Route: 048
     Dates: start: 20131220, end: 20131224
  9. RITUXIMAB [Suspect]
     Indication: DIFFUSE LARGE B-CELL LYMPHOMA
     Dosage: 375MG/M2 IV INFUSION ON DAY 3 OF A 21 DAY^S CYCLE
     Route: 042
     Dates: start: 20130927, end: 20130927
  10. RITUXIMAB [Suspect]
     Dosage: 375MG/M2 IV INFUSION ON DAY 3 OF A 21 DAY^S CYCLE
     Route: 042
     Dates: start: 20131220, end: 20131220
  11. VINCRISTINE [Suspect]
     Indication: DIFFUSE LARGE B-CELL LYMPHOMA
     Dosage: 1.4 MG/M2 IVP ON DAY 3 OF A 21 DAY^S CYCLE
     Route: 042
     Dates: start: 20130927, end: 20130927
  12. VINCRISTINE [Suspect]
     Dosage: 1.4 MG/M2 IVP ON DAY 3 OF A 21 DAY^S CYCLE
     Route: 042
     Dates: start: 20131220, end: 20131220

REACTIONS (10)
  - Lung infection [Recovering/Resolving]
  - Malaise [Recovering/Resolving]
  - Cough [Recovering/Resolving]
  - Dyspnoea [Recovering/Resolving]
  - White blood cell count decreased [Recovering/Resolving]
  - Pyrexia [Recovering/Resolving]
  - Anaemia [Recovering/Resolving]
  - Hiccups [Recovering/Resolving]
  - Constipation [Recovered/Resolved]
  - Gastrooesophageal reflux disease [Recovering/Resolving]
